FAERS Safety Report 8033585 (Version 3)
Quarter: 2013Q2

REPORT INFORMATION
  Report Type: Report from Study
  Country: FR (occurrence: FR)
  Receive Date: 20110713
  Receipt Date: 20130612
  Transmission Date: 20140414
  Serious: Yes (Hospitalization)
  Sender: FDA-Public Use
  Company Number: FR-MILLENNIUM PHARMACEUTICALS, INC.-2011-02905

PATIENT
  Sex: 0

DRUGS (12)
  1. VELCADE [Suspect]
     Indication: PLASMA CELL MYELOMA
     Dosage: 1.3 MG/M2, CYCLIC
     Route: 065
     Dates: start: 20110628, end: 20110701
  2. REVLIMID [Suspect]
     Indication: PLASMA CELL MYELOMA
     Dosage: 25 MG, CYCLIC
     Route: 065
     Dates: start: 20110628, end: 20110711
  3. REVLIMID [Suspect]
     Dosage: 20 UNK, UNK
     Route: 065
     Dates: start: 20110726
  4. DEXAMETHASONE [Suspect]
     Indication: PLASMA CELL MYELOMA
     Dosage: 20 MG, CYCLIC
     Route: 065
     Dates: start: 20110628, end: 20110702
  5. BACTRIM [Concomitant]
     Indication: PROPHYLAXIS
     Dosage: 3 UNK, UNK
     Route: 048
     Dates: start: 20110628
  6. ZELITREX                           /01269701/ [Concomitant]
     Indication: PROPHYLAXIS
     Dosage: 1 G, UNK
     Route: 048
     Dates: start: 20110628
  7. SPECIAFOLDINE [Concomitant]
     Indication: PROPHYLAXIS
     Dosage: 15 MG, UNK
     Route: 048
     Dates: start: 20110628
  8. INNOHEP                            /00889602/ [Concomitant]
     Indication: EMBOLISM
     Dosage: UNK
  9. SKENAN [Concomitant]
     Dosage: 60 MG, UNK
     Route: 065
  10. ZADITEN                            /00495202/ [Concomitant]
     Route: 065
  11. OFLOCET                            /00731801/ [Concomitant]
     Indication: LUNG DISORDER
     Dosage: 400 MG, UNK
     Route: 048
     Dates: start: 20110708, end: 20110722
  12. ROCEPHINE                          /00672201/ [Concomitant]
     Indication: LUNG DISORDER
     Dosage: 2 G, UNK
     Route: 048
     Dates: start: 20110708, end: 20110722

REACTIONS (2)
  - Lung disorder [Recovered/Resolved]
  - Neutropenia [Recovered/Resolved]
